FAERS Safety Report 17793327 (Version 1)
Quarter: 2020Q2

REPORT INFORMATION
  Report Type: Spontaneous
  Country: ES (occurrence: ES)
  Receive Date: 20200515
  Receipt Date: 20200515
  Transmission Date: 20200714
  Serious: Yes (Other)
  Sender: FDA-Public Use
  Company Number: NVSC2020ES132363

PATIENT
  Age: 30 Year
  Sex: Female
  Weight: 90 kg

DRUGS (1)
  1. AMOXICILLIN, CLAVULANIC ACID [Suspect]
     Active Substance: AMOXICILLIN\CLAVULANIC ACID
     Indication: PHARYNGOTONSILLITIS
     Dosage: 875 MG, Q8H
     Route: 065
     Dates: start: 20200203, end: 20200204

REACTIONS (2)
  - Dyspnoea [Unknown]
  - Urticaria [Unknown]

NARRATIVE: CASE EVENT DATE: 20200204
